FAERS Safety Report 20707752 (Version 4)
Quarter: 2022Q2

REPORT INFORMATION
  Report Type: Report from Study
  Country: GB (occurrence: GB)
  Receive Date: 20220413
  Receipt Date: 20220527
  Transmission Date: 20220721
  Serious: Yes (Hospitalization)
  Sender: FDA-Public Use
  Company Number: GB-CELLTRION INC.-2022GB000681

PATIENT

DRUGS (25)
  1. TRASTUZUMAB [Suspect]
     Active Substance: TRASTUZUMAB
     Indication: Breast cancer metastatic
     Dosage: 600 MG EVERY 3 WEEKS (PHARMACEUTICAL DOSE FORM (FREE TEXT): 231) (PREVIOUS CUMULATIVE DOSE: 1113.09
     Route: 058
     Dates: start: 20180216, end: 20210409
  2. TRASTUZUMAB [Suspect]
     Active Substance: TRASTUZUMAB
     Indication: HER2 positive breast cancer
     Dosage: UNK
     Route: 065
  3. TRASTUZUMAB [Suspect]
     Active Substance: TRASTUZUMAB
     Dosage: 230, MOST RECENT DOSE ON 09/APR/2021 (PHARMACEUTICAL DOSE FORM: INJECTION, SOLUTION)
     Route: 058
     Dates: start: 20180216
  4. DOCETAXEL [Suspect]
     Active Substance: DOCETAXEL
     Indication: Breast cancer
     Dosage: 120 MG, Q3W
     Route: 042
     Dates: start: 20180215
  5. DOCETAXEL [Suspect]
     Active Substance: DOCETAXEL
     Indication: Breast cancer metastatic
     Dosage: 120 MG, TIW
     Route: 042
     Dates: start: 20180216, end: 20180601
  6. DOCETAXEL [Suspect]
     Active Substance: DOCETAXEL
     Indication: HER2 positive breast cancer
     Dosage: MOST RECENT DOSE ON 01/JUN/2018
     Route: 042
     Dates: start: 20180216, end: 20180601
  7. PERTUZUMAB [Suspect]
     Active Substance: PERTUZUMAB
     Indication: Breast cancer
     Dosage: 840 MG EVERY 3 WEEKS (PREVIOUS CUMULATIVE DOSE: 1558.33 MG)
     Route: 042
     Dates: start: 20180216, end: 20210409
  8. PERTUZUMAB [Suspect]
     Active Substance: PERTUZUMAB
     Indication: HER2 positive breast cancer
     Dosage: 840 MG/KG, Q3W (DOSE FORM: 230) (CUMULATIVE DOSE: 1558.333 MG)
     Route: 042
     Dates: start: 20180216, end: 20210409
  9. PERTUZUMAB [Suspect]
     Active Substance: PERTUZUMAB
     Indication: Breast cancer metastatic
     Dosage: 1200 MG EVERY 3 WEEKS (DOSE FORM: 230) (CUMULATIVE DOSE: 64571.43 MG)
     Route: 058
     Dates: start: 20210430
  10. PERTUZUMAB [Suspect]
     Active Substance: PERTUZUMAB
     Dosage: MOST RECENT DOSE ON 09/APR/2021; PHARMACEUTICAL DOSE FORM: INFUSION, SOLUTION
     Route: 042
     Dates: start: 20180216
  11. HYALURONIDASE (HUMAN RECOMBINANT)\TRASTUZUMAB [Suspect]
     Active Substance: HYALURONIDASE (HUMAN RECOMBINANT)\TRASTUZUMAB
     Indication: Breast cancer metastatic
     Dosage: 600 MG EVERY 3 WEEKS (230, MOST RECENT DOSE ON 09/APR/2021)
     Route: 058
     Dates: start: 20180216
  12. HYALURONIDASE (HUMAN RECOMBINANT)\TRASTUZUMAB [Suspect]
     Active Substance: HYALURONIDASE (HUMAN RECOMBINANT)\TRASTUZUMAB
     Indication: HER2 positive breast cancer
  13. AMOXICILLIN [Concomitant]
     Active Substance: AMOXICILLIN
  14. CIPROFLOXACIN [Concomitant]
     Active Substance: CIPROFLOXACIN
  15. DEXAMETHASONE [Concomitant]
     Active Substance: DEXAMETHASONE
     Indication: Product used for unknown indication
     Dosage: PHARMACEUTICAL DOSE FORM (FREE TEXT): 245
     Route: 048
     Dates: start: 20180218
  16. DEXAMETHASONE [Concomitant]
     Active Substance: DEXAMETHASONE
     Dosage: 8 MILLIGRAM EVERY 3 WEEKS (DOSE FORM: 245)
     Route: 048
     Dates: start: 20180218
  17. DEXAMETHASONE [Concomitant]
     Active Substance: DEXAMETHASONE
     Dosage: 8 MG
     Route: 048
     Dates: start: 20180218
  18. FILGRASTIM [Concomitant]
     Active Substance: FILGRASTIM
     Indication: Prophylaxis
     Dosage: 300 UG
     Route: 058
     Dates: start: 20180219
  19. LOPERAMIDE [Concomitant]
     Active Substance: LOPERAMIDE
  20. METRONIDAZOLE [Concomitant]
     Active Substance: METRONIDAZOLE
  21. ACETAMINOPHEN [Concomitant]
     Active Substance: ACETAMINOPHEN
     Dosage: UNK
  22. ACETAMINOPHEN [Concomitant]
     Active Substance: ACETAMINOPHEN
     Dosage: UNK
  23. RAMIPRIL [Concomitant]
     Active Substance: RAMIPRIL
     Indication: Ejection fraction decreased
     Dosage: 2.5 MG, QD (DOSE FORM: 245); EVERY DAY
     Route: 048
     Dates: start: 20181113
  24. ZOPICLONE [Concomitant]
     Active Substance: ZOPICLONE
  25. ANADIN [Concomitant]
     Indication: Product used for unknown indication
     Dosage: 1000 MG (AS NEEDED) (DOSE FORM: 245)
     Route: 048

REACTIONS (6)
  - Post procedural infection [Unknown]
  - Fatigue [Not Recovered/Not Resolved]
  - Diarrhoea [Unknown]
  - Insomnia [Unknown]
  - Pain in extremity [Recovered/Resolved]
  - Off label use [Unknown]

NARRATIVE: CASE EVENT DATE: 20180327
